FAERS Safety Report 10161142 (Version 1)
Quarter: 2014Q2

REPORT INFORMATION
  Report Type: Spontaneous
  Country: US (occurrence: US)
  Receive Date: 20140508
  Receipt Date: 20140508
  Transmission Date: 20141212
  Serious: No
  Sender: FDA-Public Use
  Company Number: US-PFIZER INC-2014124489

PATIENT
  Age: 57 Year
  Sex: Female

DRUGS (5)
  1. DAYPRO [Suspect]
     Dosage: UNK
  2. AZULFIDINE [Suspect]
     Dosage: UNK
  3. AZATHIOPRINE [Suspect]
     Dosage: UNK
  4. PLAQUENIL [Suspect]
     Dosage: UNK
  5. CEFTIN [Suspect]
     Dosage: UNK

REACTIONS (1)
  - Drug hypersensitivity [Unknown]
